FAERS Safety Report 5972757-X (Version None)
Quarter: 2008Q4

REPORT INFORMATION
  Report Type: 
  Country: None (occurrence: None)
  Receive Date: 20081126
  Receipt Date: 20081126
  Transmission Date: 20090506
  Serious: Yes (Hospitalization)
  Sender: FDA-Public Use
  Company Number: None

PATIENT
  Age: 52 Year
  Sex: Male
  Weight: 84.2 kg

DRUGS (3)
  1. ALLOPURINOL [Suspect]
     Indication: GOUT
     Dosage: 300 MG DAILY PO
     Route: 048
     Dates: start: 20080905, end: 20080917
  2. OMEPRAZOLE [Concomitant]
  3. LISINOPRIL AND HYDROCHLOROTHIAZIDE [Concomitant]

REACTIONS (8)
  - ANAEMIA [None]
  - EOSINOPHILIA [None]
  - LIP OEDEMA [None]
  - OROPHARYNGEAL PAIN [None]
  - RASH MACULO-PAPULAR [None]
  - RASH PRURITIC [None]
  - RENAL FAILURE [None]
  - TONGUE DISORDER [None]
